FAERS Safety Report 9240341 (Version 8)
Quarter: 2014Q3

REPORT INFORMATION
  Report Type: Spontaneous
  Country: FR (occurrence: None)
  Receive Date: 20130417
  Receipt Date: 20140818
  Transmission Date: 20150326
  Serious: Yes (Hospitalization)
  Sender: FDA-Public Use
  Company Number: NGX_01552_2013

PATIENT
  Age: 61 Year
  Sex: Female
  Weight: 72 kg

DRUGS (13)
  1. EMLA /00675501/ [Concomitant]
  2. ANALGESICS [Concomitant]
     Active Substance: UNSPECIFIED INGREDIENT
  3. TRAMADOL [Concomitant]
     Active Substance: TRAMADOL
  4. RIVOTRIL [Concomitant]
     Active Substance: CLONAZEPAM
  5. ANALGESICS [Concomitant]
     Active Substance: UNSPECIFIED INGREDIENT
  6. OPIOIDS [Concomitant]
     Active Substance: UNSPECIFIED INGREDIENT
  7. LEVOTHYROX [Concomitant]
     Active Substance: LEVOTHYROXINE
  8. MORPHINE [Concomitant]
     Active Substance: MORPHINE
  9. QUTENZA [Suspect]
     Active Substance: CAPSAICIN
     Indication: NEUROPATHY PERIPHERAL
     Dosage: (DF TOPICAL)
     Route: 061
     Dates: start: 20120710, end: 20120710
  10. NEULEPTIL /00038401/ [Concomitant]
  11. NEFOPAM [Concomitant]
     Active Substance: NEFOPAM
  12. PARACETAMOL W/TRAMADOL [Concomitant]
  13. PREVISCAN /00789001/ [Concomitant]
     Active Substance: FLUINDIONE

REACTIONS (8)
  - General physical health deterioration [None]
  - Pseudarthrosis [None]
  - Polyarthritis [None]
  - Systemic inflammatory response syndrome [None]
  - Arthralgia [None]
  - Polymyalgia rheumatica [None]
  - Temporal arteritis [None]
  - Metabolic disorder [None]

NARRATIVE: CASE EVENT DATE: 2012
